FAERS Safety Report 6678179-0 (Version None)
Quarter: 2010Q2

REPORT INFORMATION
  Report Type: 
  Country: None (occurrence: None)
  Receive Date: 20100409
  Receipt Date: 20100409
  Transmission Date: 20101027
  Serious: Yes (Other)
  Sender: FDA-Public Use
  Company Number: None

PATIENT
  Age: 60 Year
  Sex: Female
  Weight: 49.1 kg

DRUGS (1)
  1. BONIVA [Suspect]
     Indication: OSTEOPENIA
     Dosage: 150MG MONTHLY ORAL
     Route: 048
     Dates: start: 20100226

REACTIONS (13)
  - BURNING SENSATION [None]
  - DECREASED APPETITE [None]
  - DYSGEUSIA [None]
  - GINGIVAL SWELLING [None]
  - GLOSSODYNIA [None]
  - INFLUENZA [None]
  - INFLUENZA LIKE ILLNESS [None]
  - JOINT STIFFNESS [None]
  - MALAISE [None]
  - NECK PAIN [None]
  - PAIN IN EXTREMITY [None]
  - TONGUE OEDEMA [None]
  - WEIGHT DECREASED [None]
